FAERS Safety Report 4405301-9 (Version None)
Quarter: 2004Q3

REPORT INFORMATION
  Report Type: 
  Country: None (occurrence: None)
  Receive Date: 20040716
  Receipt Date: 20040708
  Transmission Date: 20050211
  Serious: Yes (Hospitalization, Disabling)
  Sender: FDA-Public Use
  Company Number: 2004-05-0008

PATIENT
  Age: 44 Year
  Sex: Male

DRUGS (3)
  1. PEG-INTRON [Suspect]
     Indication: HEPATITIS C
     Dosage: 120 MCG QWK SUBCUTANEOUS
     Route: 058
     Dates: start: 20030908, end: 20040216
  2. REBETOL [Suspect]
     Indication: HEPATITIS C
     Dosage: 1-0.8 GM QD ORAL
     Route: 048
     Dates: start: 20030908, end: 20040222
  3. VOLTAREN [Concomitant]

REACTIONS (9)
  - ANAEMIA [None]
  - BLOOD PRESSURE INCREASED [None]
  - CARDIAC FAILURE [None]
  - MYALGIA [None]
  - PERICARDIAL EFFUSION [None]
  - PLEURAL EFFUSION [None]
  - RESPIRATORY DISTRESS [None]
  - TACHYCARDIA [None]
  - VENTRICULAR HYPERTROPHY [None]
